FAERS Safety Report 10148621 (Version 1)
Quarter: 2014Q2

REPORT INFORMATION
  Report Type: Spontaneous
  Country: US (occurrence: US)
  Receive Date: 20140501
  Receipt Date: 20140501
  Transmission Date: 20141212
  Serious: No
  Sender: FDA-Public Use
  Company Number: US-AMGEN-USASP2014030000

PATIENT
  Age: 57 Year
  Sex: Female

DRUGS (2)
  1. ENBREL [Suspect]
     Indication: RHEUMATOID ARTHRITIS
     Dosage: UNK
     Route: 065
     Dates: start: 20140419
  2. METHOTREXATE [Concomitant]
     Dosage: FOUR 15 MG PILLS DAILY

REACTIONS (4)
  - Peripheral swelling [Recovering/Resolving]
  - Fatigue [Not Recovered/Not Resolved]
  - Injection site erythema [Not Recovered/Not Resolved]
  - Injection site urticaria [Not Recovered/Not Resolved]
